FAERS Safety Report 6871425-X (Version None)
Quarter: 2010Q3

REPORT INFORMATION
  Report Type: 
  Country: None (occurrence: None)
  Receive Date: 20100723
  Receipt Date: 20100716
  Transmission Date: 20110219
  Serious: Yes (Other)
  Sender: FDA-Public Use
  Company Number: US-ELI_LILLY_AND_COMPANY-US201007005418

PATIENT
  Sex: Male

DRUGS (5)
  1. EFFIENT [Suspect]
     Dosage: 10 MG, UNKNOWN
     Dates: start: 20100216
  2. ZOCOR [Concomitant]
     Indication: DYSLIPIDAEMIA
     Dosage: 40 MG, UNKNOWN
  3. ALTACE [Concomitant]
     Indication: HYPERTENSION
     Dosage: 2.5 MG, UNKNOWN
  4. ASPIRIN [Concomitant]
     Dosage: 162 MG, UNKNOWN
  5. METOPROLOL SUCCINATE [Concomitant]
     Dosage: 25 MG, UNKNOWN

REACTIONS (1)
  - CORONARY OSTIAL STENOSIS [None]
